FAERS Safety Report 9686579 (Version 1)
Quarter: 2013Q4

REPORT INFORMATION
  Report Type: Spontaneous
  Country: US (occurrence: US)
  Receive Date: 20131113
  Receipt Date: 20131113
  Transmission Date: 20140711
  Serious: Yes (Other)
  Sender: FDA-Public Use
  Company Number: US-PFIZER INC-2013320234

PATIENT
  Sex: Female

DRUGS (1)
  1. LIPITOR [Suspect]
     Dosage: UNK
     Dates: start: 2006, end: 20131027

REACTIONS (4)
  - Neuropathy peripheral [Recovered/Resolved]
  - Cataract [Recovered/Resolved]
  - Myopathy [Recovered/Resolved]
  - Dizziness [Recovered/Resolved]
